FAERS Safety Report 24058287 (Version 4)
Quarter: 2024Q4

REPORT INFORMATION
  Report Type: Spontaneous
  Country: US (occurrence: US)
  Receive Date: 20240708
  Receipt Date: 20241213
  Transmission Date: 20250114
  Serious: Yes (Other)
  Sender: BRISTOL-MYERS SQUIBB COMPANY
  Company Number: US-BRISTOL-MYERS SQUIBB COMPANY-2024-106911

PATIENT
  Age: 43 Year
  Sex: Female

DRUGS (2)
  1. LENALIDOMIDE [Suspect]
     Active Substance: LENALIDOMIDE
     Indication: Plasma cell myeloma
     Dosage: TAKE 1 CAPSULE BY MOUTH EVERY DAY ON DAYS 1-21 OF A 28-DAY CYCLE. REPEAT EVERY 28 DAYS.
     Route: 048
  2. LENALIDOMIDE [Suspect]
     Active Substance: LENALIDOMIDE
     Dosage: TAKE 1 CAPSULE BY MOUTH EVERY DAY ON DAYS 1-21 OF A 28-DAY CYCLE. REPEAT EVERY 28 DAYS.
     Route: 048

REACTIONS (5)
  - Salmonellosis [Recovering/Resolving]
  - Product dose omission issue [Unknown]
  - Tooth infection [Unknown]
  - Fatigue [Unknown]
  - Product dose omission in error [Unknown]
